FAERS Safety Report 16308316 (Version 3)
Quarter: 2019Q3

REPORT INFORMATION
  Report Type: Report from Study
  Country: US (occurrence: US)
  Receive Date: 20190514
  Receipt Date: 20190917
  Transmission Date: 20191004
  Serious: Yes (Other)
  Sender: FDA-Public Use
  Company Number: PHEH2019US019871

PATIENT
  Sex: Female

DRUGS (2)
  1. ENTRESTO [Suspect]
     Active Substance: SACUBITRIL\VALSARTAN
     Dosage: 1 DF, QD
     Route: 048
  2. ENTRESTO [Suspect]
     Active Substance: SACUBITRIL\VALSARTAN
     Indication: CARDIAC FAILURE
     Route: 048

REACTIONS (6)
  - Overweight [Recovering/Resolving]
  - Neoplasm malignant [Unknown]
  - Breast cancer [Unknown]
  - Inappropriate schedule of product administration [Unknown]
  - Temperature intolerance [Unknown]
  - Pruritus [Recovered/Resolved]
